FAERS Safety Report 23936474 (Version 1)
Quarter: 2024Q2

REPORT INFORMATION
  Report Type: Spontaneous
  Country: US (occurrence: US)
  Receive Date: 20240604
  Receipt Date: 20240604
  Transmission Date: 20240716
  Serious: Yes (Life-Threatening)
  Sender: FDA-Public Use
  Company Number: US-PFIZER INC-PV202400071686

PATIENT
  Age: 44 Year
  Sex: Female

DRUGS (7)
  1. PAXLOVID [Suspect]
     Active Substance: NIRMATRELVIR\RITONAVIR
     Indication: COVID-19 treatment
     Dosage: UNK
  2. HYDROXYUREA [Concomitant]
     Active Substance: HYDROXYUREA
     Dosage: 500 MG, DAILY
  3. BUPRENORPHINE AND NALOXONE [Concomitant]
     Active Substance: BUPRENORPHINE HYDROCHLORIDE\NALOXONE HYDROCHLORIDE
     Indication: Pain
     Dosage: EVERY 8 HOURS AS NEEDED
  4. ESCITALOPRAM [Concomitant]
     Active Substance: ESCITALOPRAM OXALATE
     Dosage: 5 MG, DAILY
  5. CITALOPRAM [Concomitant]
     Active Substance: CITALOPRAM\CITALOPRAM HYDROBROMIDE
     Dosage: 40 MG, DAILY
  6. MELATONIN [Concomitant]
     Active Substance: MELATONIN
     Dosage: 3 MG, DAILY
  7. ALBUTEROL [Concomitant]
     Active Substance: ALBUTEROL
     Dosage: 1 OR 2 PUFFS EVERY 4 HOURS AS NEEDED

REACTIONS (3)
  - Acute chest syndrome [Unknown]
  - Multiple organ dysfunction syndrome [Unknown]
  - Acute right ventricular failure [Unknown]
